FAERS Safety Report 5077789-4 (Version None)
Quarter: 2006Q3

REPORT INFORMATION
  Report Type: 
  Country: None (occurrence: None)
  Receive Date: 20060810
  Receipt Date: 20060807
  Transmission Date: 20061208
  Serious: Yes (Hospitalization)
  Sender: FDA-Public Use
  Company Number: AU-MERCK-0608AUS00051

PATIENT
  Age: 6 Year
  Sex: Female
  Weight: 30 kg

DRUGS (3)
  1. SINGULAIR [Suspect]
     Indication: ASTHMA
     Route: 048
  2. ALBUTEROL [Concomitant]
     Indication: ASTHMA
     Route: 055
  3. FLUTICASONE PROPIONATE AND SALMETEROL XINAFOATE [Suspect]
     Route: 055

REACTIONS (2)
  - ABDOMINAL DISCOMFORT [None]
  - MENINGITIS [None]
